FAERS Safety Report 5702888-0 (Version None)
Quarter: 2008Q2

REPORT INFORMATION
  Report Type: 
  Country: None (occurrence: None)
  Receive Date: 20080410
  Receipt Date: 20080410
  Transmission Date: 20081010
  Serious: Yes (Hospitalization)
  Sender: FDA-Public Use
  Company Number: None

PATIENT
  Age: 71 Year
  Sex: Male
  Weight: 64.9 kg

DRUGS (2)
  1. ALENDRONATE SODIUM [Suspect]
     Dosage: 70MG QWEEK PO
     Route: 048
     Dates: start: 20051115, end: 20080109
  2. METHOTREXATE [Suspect]
     Dosage: 20MG QWEEK SQ
     Route: 058
     Dates: start: 20060419, end: 20080109

REACTIONS (7)
  - ANAEMIA [None]
  - GASTRIC HAEMORRHAGE [None]
  - GASTRITIS [None]
  - HAEMATEMESIS [None]
  - OESOPHAGITIS [None]
  - PLATELET COUNT DECREASED [None]
  - WEIGHT DECREASED [None]
